FAERS Safety Report 20865828 (Version 2)
Quarter: 2022Q3

REPORT INFORMATION
  Report Type: Spontaneous
  Country: DE (occurrence: DE)
  Receive Date: 20220524
  Receipt Date: 20220715
  Transmission Date: 20221027
  Serious: Yes (Hospitalization, Other)
  Sender: FDA-Public Use
  Company Number: DE-BFARM-22003085

PATIENT
  Age: 26 Year
  Sex: Male
  Weight: 72 kg

DRUGS (2)
  1. CIPROFLOXACIN HYDROCHLORIDE [Suspect]
     Active Substance: CIPROFLOXACIN HYDROCHLORIDE
     Indication: Prostatitis
     Dosage: 500 MILLIGRAM, UNK
     Route: 048
     Dates: start: 20180114, end: 20180202
  2. CIPROFLOXACIN HYDROCHLORIDE [Suspect]
     Active Substance: CIPROFLOXACIN HYDROCHLORIDE
     Dosage: 250 MILLIGRAM, UNK
     Route: 048
     Dates: start: 20171225, end: 20180101

REACTIONS (100)
  - Myoclonus [Unknown]
  - Gait disturbance [Unknown]
  - Disturbance in attention [Unknown]
  - Polyneuropathy [Unknown]
  - Circadian rhythm sleep disorder [Unknown]
  - Abdominal pain lower [Unknown]
  - Mental impairment [Unknown]
  - Sleep disorder [Unknown]
  - Enteritis [Unknown]
  - Visual impairment [Unknown]
  - Constipation [Unknown]
  - Head discomfort [Unknown]
  - Somnolence [Unknown]
  - Impaired self-care [Unknown]
  - Auditory disorder [Unknown]
  - Sick leave [Unknown]
  - Headache [Unknown]
  - Photophobia [Unknown]
  - Insomnia [Unknown]
  - Pain in extremity [Unknown]
  - Hypersensitivity [Unknown]
  - Impaired quality of life [Unknown]
  - Disability [Unknown]
  - Nervousness [Unknown]
  - Seizure [Unknown]
  - Toxicity to various agents [Unknown]
  - Paraesthesia [Unknown]
  - Hyperacusis [Unknown]
  - Fatigue [Unknown]
  - Depression [Unknown]
  - Chronic fatigue syndrome [Unknown]
  - Iron overload [Unknown]
  - Hypoaesthesia [Unknown]
  - Feeling abnormal [Unknown]
  - Depersonalisation/derealisation disorder [Unknown]
  - Depressed level of consciousness [Unknown]
  - Metabolic disorder [Unknown]
  - Aphasia [Unknown]
  - Depression [Unknown]
  - Iron overload [Unknown]
  - Nervous system disorder [Unknown]
  - Dysbiosis [Unknown]
  - Insomnia [Recovered/Resolved with Sequelae]
  - Disability [Unknown]
  - Dizziness [Unknown]
  - Confusional state [Unknown]
  - Muscle twitching [Unknown]
  - Depersonalisation/derealisation disorder [Unknown]
  - Auditory disorder [Recovered/Resolved with Sequelae]
  - Photophobia [Recovered/Resolved with Sequelae]
  - Abdominal pain lower [Unknown]
  - Polyneuropathy [Recovered/Resolved with Sequelae]
  - Somnolence [Unknown]
  - Impaired self-care [Unknown]
  - Pain [Unknown]
  - Gait disturbance [Unknown]
  - Feeling abnormal [Recovered/Resolved with Sequelae]
  - Irritable bowel syndrome [Unknown]
  - Nervous system disorder [Recovered/Resolved with Sequelae]
  - Myoclonus [Unknown]
  - Head discomfort [Recovered/Resolved with Sequelae]
  - Sleep disorder [Recovered/Resolved with Sequelae]
  - Gait disturbance [Unknown]
  - Dysbiosis [Recovered/Resolved with Sequelae]
  - Visual impairment [Recovered/Resolved with Sequelae]
  - Tinnitus [Unknown]
  - Anxiety [Unknown]
  - Disability [Recovered/Resolved with Sequelae]
  - Circadian rhythm sleep disorder [Unknown]
  - Hypersensitivity [Recovered/Resolved with Sequelae]
  - Dizziness [Recovered/Resolved with Sequelae]
  - Disability [Recovered/Resolved with Sequelae]
  - Hypoaesthesia [Recovered/Resolved with Sequelae]
  - Nervousness [Recovered/Resolved with Sequelae]
  - Impaired quality of life [Unknown]
  - Confusional state [Recovered/Resolved with Sequelae]
  - Chronic fatigue syndrome [Recovered/Resolved with Sequelae]
  - Hyperacusis [Recovered/Resolved with Sequelae]
  - Hypoaesthesia [Recovered/Resolved with Sequelae]
  - Toxicity to various agents [Recovered/Resolved with Sequelae]
  - Muscle twitching [Recovered/Resolved with Sequelae]
  - Aphasia [Recovered/Resolved with Sequelae]
  - Paraesthesia [Recovered/Resolved with Sequelae]
  - Pain in extremity [Unknown]
  - Constipation [Recovered/Resolved with Sequelae]
  - Panic attack [Unknown]
  - Irritability [Recovered/Resolved with Sequelae]
  - Sick leave [Unknown]
  - Enteritis [Recovered/Resolved with Sequelae]
  - Disorientation [Unknown]
  - Disturbance in attention [Recovered/Resolved with Sequelae]
  - Metabolic disorder [Recovered/Resolved with Sequelae]
  - Mood swings [Recovered/Resolved with Sequelae]
  - Depressed level of consciousness [Recovered/Resolved with Sequelae]
  - Seizure [Unknown]
  - Headache [Recovered/Resolved with Sequelae]
  - Dyskinesia [Recovered/Resolved with Sequelae]
  - Asthenia [Recovered/Resolved with Sequelae]
  - Fatigue [Recovered/Resolved with Sequelae]
  - Mental impairment [Recovered/Resolved with Sequelae]

NARRATIVE: CASE EVENT DATE: 20171201
